FAERS Safety Report 9312484 (Version 1)
Quarter: 2013Q2

REPORT INFORMATION
  Report Type: Spontaneous
  Country: JP (occurrence: None)
  Receive Date: 20130520
  Receipt Date: 20130520
  Transmission Date: 20140414
  Serious: Yes (Hospitalization, Disabling, Other)
  Sender: FDA-Public Use
  Company Number: 2013P1006165

PATIENT
  Age: 63 Year
  Sex: Female

DRUGS (12)
  1. PLAQUENIL [Suspect]
     Route: 048
     Dates: start: 20120718, end: 20120822
  2. PREDNISOLONE [Suspect]
     Dates: start: 20120210, end: 20130210
  3. MICARDIS [Concomitant]
  4. ACTONEL [Concomitant]
  5. HIRUDOID [Concomitant]
  6. ALL OTHER THERAPEUTIC PRODUCTS (UNSEIINN T57)) [Concomitant]
  7. BENOXIL [Concomitant]
  8. MYDRIN P [Concomitant]
  9. LOXONIN [Concomitant]
  10. TOUKISHAKUYAKUSAN [Concomitant]
  11. ALL OTHER THERAPEUTIC PRODUCTS ()HOCHUEKKITOU (KB41) [Concomitant]
  12. POVIDONE IODINE [Concomitant]

REACTIONS (5)
  - Loss of consciousness [None]
  - Meningitis pneumococcal [None]
  - Deafness unilateral [None]
  - Hypoacusis [None]
  - Diplegia [None]
